FAERS Safety Report 4890073-4 (Version None)
Quarter: 2006Q1

REPORT INFORMATION
  Report Type: 
  Country: None (occurrence: None)
  Receive Date: 20060120
  Receipt Date: 20060104
  Transmission Date: 20060701
  Serious: Yes (Death)
  Sender: FDA-Public Use
  Company Number: 220517

PATIENT
  Age: 58 Year
  Sex: Female
  Weight: 56 kg

DRUGS (7)
  1. MABTHERA (RITUXIMAB) CONC FOR SOLUTION FOR INFUSION [Suspect]
     Indication: DIFFUSE LARGE B-CELL LYMPHOMA
     Dosage: 600  MG, Q3W, INTRAVENOUS
     Route: 042
     Dates: start: 20050524, end: 20050704
  2. CYCLOPHOSPHAMIDE [Suspect]
     Indication: DIFFUSE LARGE B-CELL LYMPHOMA
     Dosage: 1300 MG, Q3W, INTRAVENOUS
     Route: 042
     Dates: start: 20050525, end: 20050725
  3. DOXORUBICIN HCL [Suspect]
     Indication: DIFFUSE LARGE B-CELL LYMPHOMA
     Dosage: 50 MG, Q3W, INTRAVENOUS
     Route: 042
     Dates: start: 20050525, end: 20050725
  4. VINCRISTINE [Suspect]
     Indication: DIFFUSE LARGE B-CELL LYMPHOMA
     Dosage: 2 MG, Q3W, INTRAVENOUS
     Route: 042
     Dates: start: 20050525, end: 20050725
  5. PREDNISONE [Suspect]
     Indication: DIFFUSE LARGE B-CELL LYMPHOMA
     Dosage: 100 MG, QD, ORAL
     Route: 048
  6. ZYRTEC [Concomitant]
  7. PREDNISONE [Concomitant]

REACTIONS (5)
  - ACUTE RESPIRATORY FAILURE [None]
  - PNEUMONIA [None]
  - RASH [None]
  - SEPSIS [None]
  - SUDDEN DEATH [None]
